FAERS Safety Report 23627824 (Version 1)
Quarter: 2024Q1

REPORT INFORMATION
  Report Type: Spontaneous
  Country: PL (occurrence: PL)
  Receive Date: 20240313
  Receipt Date: 20240313
  Transmission Date: 20240409
  Serious: Yes (Other)
  Sender: FDA-Public Use
  Company Number: PL-AMGEN-POLSP2024040060

PATIENT
  Age: 45 Year
  Sex: Male

DRUGS (4)
  1. FLUOROURACIL [Suspect]
     Active Substance: FLUOROURACIL
     Indication: Colorectal cancer
     Dosage: UNK
     Route: 065
     Dates: start: 20220603
  2. LEUCOVORIN [Suspect]
     Active Substance: LEUCOVORIN\LEUCOVORIN CALCIUM
     Indication: Colorectal cancer
     Dosage: UNK
     Route: 065
     Dates: start: 20220603
  3. VECTIBIX [Suspect]
     Active Substance: PANITUMUMAB
     Indication: Colorectal cancer
     Dosage: 1, UNK
     Route: 065
     Dates: start: 20220603
  4. OXALIPLATIN [Suspect]
     Active Substance: OXALIPLATIN
     Indication: Colorectal cancer
     Dosage: UNK
     Route: 065
     Dates: start: 20220603

REACTIONS (4)
  - Neuropathy peripheral [Unknown]
  - Liver function test increased [Recovering/Resolving]
  - Skin toxicity [Unknown]
  - Skin lesion [Unknown]
